FAERS Safety Report 7687183-5 (Version None)
Quarter: 2011Q3

REPORT INFORMATION
  Report Type: 
  Country: None (occurrence: None)
  Receive Date: 20110816
  Receipt Date: 20110808
  Transmission Date: 20111222
  Serious: Yes (Other)
  Sender: FDA-Public Use
  Company Number: US-BAYER-201037809NA

PATIENT
  Age: 37 Year
  Sex: Female
  Weight: 58.05 kg

DRUGS (6)
  1. YAZ [Suspect]
     Dosage: UNK UNK, UNK
     Route: 048
     Dates: start: 20070601, end: 20090901
  2. NSAID'S [Concomitant]
  3. CELEXA [Concomitant]
  4. ASCORBIC ACID [Concomitant]
  5. ADVIL LIQUI-GELS [Concomitant]
  6. RETIN-A [Concomitant]

REACTIONS (8)
  - CHOLECYSTITIS CHRONIC [None]
  - ABDOMINAL PAIN UPPER [None]
  - VOMITING [None]
  - CHOLELITHIASIS [None]
  - BILIARY DILATATION [None]
  - HEPATOMEGALY [None]
  - NAUSEA [None]
  - PROCEDURAL PAIN [None]
